FAERS Safety Report 7916856 (Version 3)
Quarter: 2013Q2

REPORT INFORMATION
  Report Type: Spontaneous
  Country: US (occurrence: US)
  Receive Date: 20110427
  Receipt Date: 20130501
  Transmission Date: 20140414
  Serious: Yes (Hospitalization)
  Sender: FDA-Public Use
  Company Number: US-BAYER-2011-032051

PATIENT
  Age: 52 Year
  Sex: Female
  Weight: 58.96 kg

DRUGS (12)
  1. YAZ [Suspect]
     Dosage: UNK
     Dates: start: 20080430, end: 20090601
  2. HYDROXYZINE HCL [Concomitant]
     Dosage: UNK
     Dates: start: 20090429
  3. ZOLPIDEM [Concomitant]
     Indication: SLEEP DISORDER
  4. PAROXETINE [Concomitant]
     Indication: ANXIETY
  5. WELLBUTRIN [Concomitant]
     Dosage: 150 MG, UNK
  6. LEVOTHYROXINE [Concomitant]
     Dosage: 75 MCG
  7. PEPCID [Concomitant]
  8. AMBIEN [Concomitant]
  9. ESTRACE [Concomitant]
     Dosage: 0.01 %, UNK
  10. DULCOLAX [BISACODYL] [Concomitant]
  11. XANAX [Concomitant]
  12. ACETAMINOPHEN [Concomitant]

REACTIONS (13)
  - Cerebrovascular accident [None]
  - Cerebrovascular accident [None]
  - Disability [None]
  - Speech disorder [None]
  - Hypoaesthesia [None]
  - Reading disorder [None]
  - Speech disorder [None]
  - Disturbance in attention [None]
  - Depression [None]
  - Emotional disorder [None]
  - Pain [None]
  - Fatigue [None]
  - Anxiety [None]
